FAERS Safety Report 22604363 (Version 1)
Quarter: 2023Q2

REPORT INFORMATION
  Report Type: Spontaneous
  Country: US (occurrence: US)
  Receive Date: 20230615
  Receipt Date: 20230615
  Transmission Date: 20230722
  Serious: Yes (Other)
  Sender: FDA-Public Use
  Company Number: US-AUROBINDO-AUR-APL-2023-042124

PATIENT
  Age: 74 Year
  Sex: Female

DRUGS (1)
  1. OLMESARTAN MEDOXOMIL [Suspect]
     Active Substance: OLMESARTAN MEDOXOMIL
     Indication: Hypertension
     Dosage: UNK
     Route: 065

REACTIONS (6)
  - Necrotising oesophagitis [Unknown]
  - Gastrointestinal disorder [Unknown]
  - Weight decreased [Recovering/Resolving]
  - Vomiting [Unknown]
  - Diarrhoea [Recovered/Resolved]
  - Nausea [Unknown]
